FAERS Safety Report 8373071-8 (Version None)
Quarter: 2012Q2

REPORT INFORMATION
  Report Type: 
  Country: None (occurrence: None)
  Receive Date: 20120521
  Receipt Date: 20120514
  Transmission Date: 20120825
  Serious: Yes (Other)
  Sender: FDA-Public Use
  Company Number: PHHY2012DE041690

PATIENT
  Age: 32 Year
  Sex: Male

DRUGS (2)
  1. OMEPRAZOLE [Concomitant]
  2. TASIGNA [Suspect]
     Indication: CHRONIC MYELOID LEUKAEMIA
     Dosage: 300 MG, UNK
     Route: 048
     Dates: start: 20110801

REACTIONS (1)
  - DEAFNESS UNILATERAL [None]
